FAERS Safety Report 25548113 (Version 1)
Quarter: 2025Q3

REPORT INFORMATION
  Report Type: Other
  Country: CA (occurrence: CA)
  Receive Date: 20250714
  Receipt Date: 20250714
  Transmission Date: 20251020
  Serious: Yes (Other)
  Sender: APOTEX
  Company Number: CA-PGRTD-E2B_07540993

PATIENT
  Age: 82 Year
  Sex: Female
  Weight: 58.3 kg

DRUGS (1)
  1. FULVESTRANT [Suspect]
     Active Substance: FULVESTRANT
     Indication: Breast cancer metastatic
     Route: 065

REACTIONS (5)
  - Dyspnoea exertional [Unknown]
  - Cardiac valve disease [Unknown]
  - Hypertension [Unknown]
  - Fatigue [Unknown]
  - Cough [Unknown]
